FAERS Safety Report 9115631 (Version 1)
Quarter: 2013Q1

REPORT INFORMATION
  Report Type: Spontaneous
  Country: US (occurrence: US)
  Receive Date: 20130225
  Receipt Date: 20130225
  Transmission Date: 20140127
  Serious: Yes (Other)
  Sender: FDA-Public Use
  Company Number: US-BRISTOL-MYERS SQUIBB COMPANY-16560906

PATIENT
  Age: 55 Year
  Sex: Female

DRUGS (1)
  1. KENALOG [Suspect]
     Dosage: ANOTHER DOSE-04SEP12
     Dates: start: 20120402

REACTIONS (4)
  - Hypertension [Not Recovered/Not Resolved]
  - Depression [Unknown]
  - Urinary tract infection [Unknown]
  - Hypoaesthesia [Unknown]
